FAERS Safety Report 6178130-6 (Version None)
Quarter: 2009Q2

REPORT INFORMATION
  Report Type: 
  Country: None (occurrence: None)
  Receive Date: 20090504
  Receipt Date: 20090423
  Transmission Date: 20091009
  Serious: Yes (Hospitalization, Other)
  Sender: FDA-Public Use
  Company Number: PHBS2007BR18987

PATIENT
  Sex: Male
  Weight: 90 kg

DRUGS (15)
  1. GLEEVEC [Suspect]
     Indication: LEUKAEMIA
     Dosage: 400 MG, BID
     Route: 048
  2. GLEEVEC [Suspect]
     Dosage: 600MG
  3. GLEEVEC [Suspect]
     Dosage: 800 MG
  4. GLEEVEC [Suspect]
     Dosage: 400MG
  5. ZYLORIC [Concomitant]
     Indication: LEUKAEMIA
     Dosage: 300 MG, QD
     Route: 048
  6. LOSARTAN POSTASSIUM [Concomitant]
     Indication: HYPERTENSION
     Dosage: 50/2,5MG/50MG
     Route: 048
  7. AMLODIPINE [Concomitant]
     Indication: HYPERTENSION
     Dosage: 50/2,5MG/50MG
  8. LANZOPRAZOL [Concomitant]
     Indication: PAIN
     Dosage: 30 MG, QD
     Route: 048
  9. MOTILIUM [Concomitant]
     Indication: GASTRITIS
     Dosage: 1 TAB/D
     Route: 048
  10. POTASSIUM CHLORATE [Concomitant]
     Indication: MUSCLE SPASMS
     Dosage: 600 MG, QD
     Route: 048
  11. GLIBENCLAMIDE [Concomitant]
     Indication: DIABETES MELLITUS
     Dosage: TABLETS DAILY - 1 IN THE MORNING AND OTHER IN THE AFTERNOON
  12. GILFAGE [Concomitant]
     Indication: DIABETES MELLITUS
     Dosage: 500 MG, QD
  13. PLAVIX [Concomitant]
     Dosage: 75MG
     Route: 048
  14. ONDANSETRON [Concomitant]
     Dosage: 4MG
  15. HYDREA [Concomitant]
     Dosage: 500MG

REACTIONS (22)
  - BLOOD IRON INCREASED [None]
  - CAROTID ARTERY OCCLUSION [None]
  - CONDITION AGGRAVATED [None]
  - DYSPNOEA [None]
  - FATIGUE [None]
  - HAEMOGLOBIN DECREASED [None]
  - KARYOTYPE ANALYSIS ABNORMAL [None]
  - KIDNEY ENLARGEMENT [None]
  - NEPHROLITHIASIS [None]
  - PAIN IN EXTREMITY [None]
  - PLATELET COUNT DECREASED [None]
  - PNEUMONIA [None]
  - PULSE ABNORMAL [None]
  - RENAL SURGERY [None]
  - TOOTH EXTRACTION [None]
  - TOOTH INFECTION [None]
  - TOOTHACHE [None]
  - TRANSFUSION [None]
  - URINARY TRACT INFECTION [None]
  - VOMITING [None]
  - WEIGHT DECREASED [None]
  - WHITE BLOOD CELL COUNT INCREASED [None]
